FAERS Safety Report 4766674-0 (Version None)
Quarter: 2005Q3

REPORT INFORMATION
  Report Type: 
  Country: None (occurrence: None)
  Receive Date: 20050909
  Receipt Date: 20050906
  Transmission Date: 20060218
  Serious: Yes (Other)
  Sender: FDA-Public Use
  Company Number: 005592

PATIENT
  Age: 61 Year
  Sex: Female

DRUGS (5)
  1. MEDROXYPROGESTERONE ACETATE [Suspect]
     Dosage: ORAL
     Route: 048
     Dates: start: 19980901, end: 20000201
  2. PROVERA [Suspect]
     Dosage: ORAL
     Route: 048
     Dates: start: 19980901, end: 20000201
  3. PREMARIN [Suspect]
     Dosage: ORAL
     Route: 048
     Dates: start: 19950101, end: 20000201
  4. CYCRIN [Suspect]
     Dosage: ORAL
     Route: 048
     Dates: start: 19960201, end: 19980801
  5. PREMPRO [Suspect]
     Dosage: ORAL
     Route: 048
     Dates: start: 20000501, end: 20030801

REACTIONS (2)
  - BREAST CANCER FEMALE [None]
  - BREAST CANCER IN SITU [None]
